FAERS Safety Report 9739515 (Version 1)
Quarter: 2013Q4

REPORT INFORMATION
  Report Type: Other
  Country: DE (occurrence: DE)
  Receive Date: 20131209
  Receipt Date: 20131209
  Transmission Date: 20140711
  Serious: Yes (Hospitalization)
  Sender: FDA-Public Use
  Company Number: DE-NOVEN-13DE008300

PATIENT
  Age: 68 Year
  Sex: Male

DRUGS (8)
  1. PAROXETINE [Suspect]
     Indication: PRODUCT USED FOR UNKNOWN INDICATION
     Dosage: 20 MG, UNK
     Route: 048
     Dates: end: 20130610
  2. PAROXETINE [Suspect]
     Dosage: 10 MG, UNK
     Route: 048
     Dates: start: 20130611, end: 20130614
  3. PROMETHAZIN [Concomitant]
     Indication: PRODUCT USED FOR UNKNOWN INDICATION
     Dosage: 100 MG, UNK
     Route: 048
     Dates: end: 20130603
  4. PROMETHAZIN [Concomitant]
     Dosage: 50 MG, UNK
     Route: 048
     Dates: start: 20130604, end: 20130606
  5. ACETYLSALICYLIC ACID [Concomitant]
     Indication: PRODUCT USED FOR UNKNOWN INDICATION
  6. GABAPENTIN [Concomitant]
     Indication: PRODUCT USED FOR UNKNOWN INDICATION
  7. INDOMETACIN [Concomitant]
     Indication: PRODUCT USED FOR UNKNOWN INDICATION
     Dosage: UNK
     Dates: end: 20131126
  8. TRAMADOL [Concomitant]
     Indication: PRODUCT USED FOR UNKNOWN INDICATION
     Dosage: 200 MG, UNK
     Route: 048
     Dates: start: 20130625

REACTIONS (6)
  - Disorientation [Unknown]
  - Restlessness [Unknown]
  - Serotonin syndrome [Unknown]
  - Tachycardia [Unknown]
  - Hyperhidrosis [Unknown]
  - Tremor [Unknown]
